FAERS Safety Report 4727641-6 (Version None)
Quarter: 2005Q3

REPORT INFORMATION
  Report Type: 
  Country: None (occurrence: None)
  Receive Date: 20050727
  Receipt Date: 20050727
  Transmission Date: 20060218
  Serious: Yes (Hospitalization)
  Sender: FDA-Public Use
  Company Number: None

PATIENT
  Sex: Female
  Weight: 19.0511 kg

DRUGS (1)
  1. ROBITUSSIN CF [Suspect]
     Indication: COUGH
     Dosage: 1 TSP 1 TIME
     Dates: start: 20050627, end: 20050627

REACTIONS (4)
  - CONVULSION [None]
  - LOSS OF CONSCIOUSNESS [None]
  - MUSCLE TWITCHING [None]
  - VOMITING [None]
